FAERS Safety Report 18467412 (Version 1)
Quarter: 2020Q4

REPORT INFORMATION
  Report Type: Spontaneous
  Country: US (occurrence: US)
  Receive Date: 20201105
  Receipt Date: 20201105
  Transmission Date: 20210114
  Serious: Yes (Hospitalization)
  Sender: FDA-Public Use
  Company Number: US-JNJFOC-A-NJ2020-204238

PATIENT
  Age: 84 Year
  Sex: Male
  Weight: 90.7 kg

DRUGS (4)
  1. DILTIAZEM. [Concomitant]
     Active Substance: DILTIAZEM
  2. ELIQUIS [Concomitant]
     Active Substance: APIXABAN
  3. OPSUMIT [Suspect]
     Active Substance: MACITENTAN
     Indication: PULMONARY ARTERIAL HYPERTENSION
     Dosage: 10 MG, QD
     Route: 048
  4. TADALAFIL. [Concomitant]
     Active Substance: TADALAFIL

REACTIONS (6)
  - Hospitalisation [Unknown]
  - Haemoglobin decreased [Unknown]
  - Fall [Unknown]
  - Surgery [Unknown]
  - Fluid retention [Unknown]
  - Transfusion [Unknown]

NARRATIVE: CASE EVENT DATE: 202007
